FAERS Safety Report 6590535-8 (Version None)
Quarter: 2010Q1

REPORT INFORMATION
  Report Type: 
  Country: None (occurrence: None)
  Receive Date: 20100219
  Receipt Date: 20100208
  Transmission Date: 20100710
  Serious: Yes (Other)
  Sender: FDA-Public Use
  Company Number: JP-PFIZER INC-2009254281

PATIENT
  Age: 79 Year
  Sex: Male
  Weight: 48.2 kg

DRUGS (9)
  1. SUNITINIB MALATE [Suspect]
     Indication: RENAL CELL CARCINOMA
     Dosage: 50 MG, 1X/DAY
     Route: 048
     Dates: start: 20090608, end: 20090621
  2. FERROMIA [Concomitant]
     Route: 048
     Dates: start: 20090530
  3. MAGNESIUM OXIDE [Concomitant]
     Route: 048
  4. NORVASC [Concomitant]
     Route: 048
  5. PURSENNID [Concomitant]
     Route: 048
  6. HYPEN [Concomitant]
     Indication: CANCER PAIN
     Route: 048
     Dates: start: 20090617
  7. GASLON [Concomitant]
     Route: 048
     Dates: start: 20090617
  8. OXYCONTIN [Concomitant]
     Indication: CANCER PAIN
     Dates: start: 20090619
  9. LENDORMIN [Concomitant]
     Dosage: UNK
     Route: 048

REACTIONS (1)
  - APHASIA [None]
